FAERS Safety Report 5166779-9 (Version None)
Quarter: 2006Q4

REPORT INFORMATION
  Report Type: 
  Country: None (occurrence: None)
  Receive Date: 20061129
  Receipt Date: 20061114
  Transmission Date: 20070319
  Serious: Yes (Hospitalization)
  Sender: FDA-Public Use
  Company Number: 2005-134510-NL

PATIENT
  Age: 32 Year
  Sex: Female
  Weight: 57.2 kg

DRUGS (2)
  1. NUVARING [Suspect]
     Indication: CONTRACEPTION
     Dosage: VAGINAL
     Route: 067
     Dates: start: 20040901, end: 20050308
  2. NUVARING [Suspect]
     Indication: MENORRHAGIA
     Dosage: VAGINAL
     Route: 067
     Dates: start: 20040901, end: 20050308

REACTIONS (5)
  - ATRIAL SEPTAL DEFECT [None]
  - HYPERCOAGULATION [None]
  - RENAL DISORDER [None]
  - RENAL INFARCT [None]
  - THROMBOSIS [None]
